FAERS Safety Report 18326028 (Version 2)
Quarter: 2020Q4

REPORT INFORMATION
  Report Type: Spontaneous
  Country: IT (occurrence: IT)
  Receive Date: 20200929
  Receipt Date: 20201006
  Transmission Date: 20210113
  Serious: Yes (Other)
  Sender: FDA-Public Use
  Company Number: IT-MYLANLABS-2020M1082203

PATIENT
  Age: 62 Year
  Sex: Male
  Weight: 64 kg

DRUGS (7)
  1. DEXTRAN SULFATE [Suspect]
     Active Substance: DEXTRAN
     Dosage: EXTRACORPOREAL TREATMENT
  2. ASPIRIN W/CLOPIDOGREL [Concomitant]
     Active Substance: ASPIRIN\CLOPIDOGREL
     Indication: PRODUCT USED FOR UNKNOWN INDICATION
     Dosage: 100/75MG ONCE A DAY
     Route: 065
  3. BISOPROLOL [Suspect]
     Active Substance: BISOPROLOL
     Indication: STRESS CARDIOMYOPATHY
     Dosage: 1.25 MILLIGRAM, QD
     Route: 048
  4. DEXTRAN SULFATE [Suspect]
     Active Substance: DEXTRAN
     Indication: HYPERLIPIDAEMIA
     Dosage: THE LIPOPROTEIN APHERESIS [LIPOSORBER] WAS PERFORMED..
     Route: 065
  5. BISOPROLOL [Suspect]
     Active Substance: BISOPROLOL
     Indication: CORONARY ARTERY DISEASE
  6. DEXTRAN SULFATE [Suspect]
     Active Substance: DEXTRAN
     Indication: DYSLIPIDAEMIA
     Dosage: SYSTEMIC MALAISE OCCURRED AT THE TIME WHEN 600ML....
     Route: 065
  7. ATORVASTATIN [Concomitant]
     Active Substance: ATORVASTATIN
     Indication: HYPERLIPIDAEMIA
     Dosage: 20 MILLIGRAM, QD
     Route: 065

REACTIONS (1)
  - Presyncope [Recovered/Resolved]
